FAERS Safety Report 14103584 (Version 1)
Quarter: 2017Q4

REPORT INFORMATION
  Report Type: Spontaneous
  Country: ES (occurrence: ES)
  Receive Date: 20171018
  Receipt Date: 20171018
  Transmission Date: 20180321
  Serious: Yes (Other)
  Sender: FDA-Public Use
  Company Number: ES-TEVA-815231ISR

PATIENT
  Age: 52 Year
  Sex: Male
  Weight: 72 kg

DRUGS (1)
  1. AZITROMICINA TEVA 500 MG COMPRIMIDOS RECUBIERTOS CON PELICULA [Suspect]
     Active Substance: AZITHROMYCIN
     Indication: PYREXIA
     Dosage: 500 MILLIGRAM DAILY; 500 MG EVERY DAY, 3 DAYS
     Route: 048
     Dates: start: 20170920, end: 20170922

REACTIONS (7)
  - Chest pain [Recovering/Resolving]
  - Oral candidiasis [Recovering/Resolving]
  - Stomatitis [Recovering/Resolving]
  - Insomnia [Recovering/Resolving]
  - Laryngeal pain [Recovering/Resolving]
  - Nervousness [Recovering/Resolving]
  - Headache [Recovering/Resolving]

NARRATIVE: CASE EVENT DATE: 20170920
